FAERS Safety Report 7550069-0 (Version None)
Quarter: 2011Q2

REPORT INFORMATION
  Report Type: 
  Country: None (occurrence: None)
  Receive Date: 20110615
  Receipt Date: 20110209
  Transmission Date: 20111010
  Serious: No
  Sender: FDA-Public Use
  Company Number: US-TYCO HEALTHCARE/MALLINCKRODT-T201100015

PATIENT
  Age: 80 Year
  Sex: Female

DRUGS (3)
  1. ACD [Concomitant]
     Indication: ANTICOAGULANT THERAPY
     Dosage: 0.2 ML, SINGLE
     Dates: start: 20110104, end: 20110104
  2. TECHNETIUM TC 99M GENERATOR [Concomitant]
     Indication: RADIOISOTOPE SCAN
     Dosage: UNK, SINGLE
     Dates: start: 20110104, end: 20110104
  3. ULTRATAG [Suspect]
     Indication: RADIOISOTOPE SCAN
     Dosage: UNK, SINGLE
     Dates: start: 20110104, end: 20110104

REACTIONS (1)
  - DRUG INEFFECTIVE [None]
